FAERS Safety Report 15311401 (Version 1)
Quarter: 2018Q3

REPORT INFORMATION
  Report Type: Spontaneous
  Country: US (occurrence: US)
  Receive Date: 20180823
  Receipt Date: 20180823
  Transmission Date: 20181010
  Serious: Yes (Other)
  Sender: FDA-Public Use
  Company Number: US-LUNDBECK-DKLU2053150

PATIENT
  Age: 4 Year
  Sex: Female

DRUGS (2)
  1. SABRIL [Suspect]
     Active Substance: VIGABATRIN
     Route: 048
  2. SABRIL [Suspect]
     Active Substance: VIGABATRIN
     Indication: EPILEPSY
     Route: 048

REACTIONS (1)
  - Seizure [Unknown]

NARRATIVE: CASE EVENT DATE: 201806
